FAERS Safety Report 4901116-3 (Version None)
Quarter: 2006Q1

REPORT INFORMATION
  Report Type: 
  Country: None (occurrence: None)
  Receive Date: 20060113
  Receipt Date: 20050929
  Transmission Date: 20060701
  Serious: No
  Sender: FDA-Public Use
  Company Number: 2005SP000433

PATIENT
  Age: 60 Year
  Sex: Female
  Weight: 61.2356 kg

DRUGS (5)
  1. LUNESTA [Suspect]
     Indication: INSOMNIA
     Dosage: 1X; ORAL
     Route: 048
     Dates: start: 20050425, end: 20050425
  2. THYROID TAB [Concomitant]
  3. ESTRADIOL [Concomitant]
  4. PROMETRIUM [Concomitant]
  5. MICARDIS [Concomitant]

REACTIONS (1)
  - DYSGEUSIA [None]
